FAERS Safety Report 6052295-9 (Version None)
Quarter: 2009Q1

REPORT INFORMATION
  Report Type: 
  Country: None (occurrence: None)
  Receive Date: 20090121
  Receipt Date: 20090109
  Transmission Date: 20090719
  Serious: Yes (Other)
  Sender: FDA-Public Use
  Company Number: 2009EN000005

PATIENT
  Age: 53 Year
  Sex: Male

DRUGS (6)
  1. ABELCET [Suspect]
     Indication: SYSTEMIC CANDIDA
     Dosage: 240 MG; ; IV
     Route: 042
     Dates: start: 20081222, end: 20081222
  2. LEVOTHYROXINE SODIUM [Concomitant]
  3. CHLORPROMAZINE [Concomitant]
  4. VANCOMYCIN [Concomitant]
  5. METRONIDAZOLE [Concomitant]
  6. GENTAMICIN [Concomitant]

REACTIONS (4)
  - BLOOD PRESSURE INCREASED [None]
  - HEART RATE INCREASED [None]
  - HYPERVENTILATION [None]
  - TREMOR [None]
